FAERS Safety Report 8458545 (Version 2)
Quarter: 2013Q4

REPORT INFORMATION
  Report Type: Spontaneous
  Country: US (occurrence: US)
  Receive Date: 20120314
  Receipt Date: 20131211
  Transmission Date: 20140711
  Serious: Yes (Disabling)
  Sender: FDA-Public Use
  Company Number: US-GLAXOSMITHKLINE-A0969550A

PATIENT
  Age: 52 Year
  Sex: Female
  Weight: 61.4 kg

DRUGS (4)
  1. PAXIL [Suspect]
     Indication: DEPRESSION
     Dosage: 150MG PER DAY
     Route: 065
     Dates: start: 2002, end: 2002
  2. WELLBUTRIN [Suspect]
     Indication: PRODUCT USED FOR UNKNOWN INDICATION
     Route: 065
  3. ALPRAZOLAM [Suspect]
     Indication: PANIC ATTACK
     Dosage: 2MG FOUR TIMES PER DAY
     Route: 065
  4. NO CONCURRENT MEDICATIONS [Concomitant]

REACTIONS (6)
  - Muscle disorder [Recovered/Resolved]
  - Abasia [Recovered/Resolved]
  - Fall [Unknown]
  - Muscle atrophy [Unknown]
  - Dry mouth [Unknown]
  - Tremor [Unknown]
